FAERS Safety Report 8720109 (Version 3)
Quarter: 2012Q4

REPORT INFORMATION
  Report Type: 
  Country: ES (occurrence: ES)
  Receive Date: 20120813
  Receipt Date: 20121029
  Transmission Date: 20130627
  Serious: Yes (Hospitalization)
  Sender: FDA-Public Use
  Company Number: ES-SANOFI-AVENTIS-2012SA056014

PATIENT
  Age: 77 Year
  Sex: Female

DRUGS (6)
  1. RIFALDIN [Suspect]
     Indication: INFECTION
     Route: 042
     Dates: start: 20120719, end: 20120722
  2. LEVOFLOXACIN [Interacting]
     Indication: INFECTION
     Dosage: form- solucion para perfusion
     Route: 042
     Dates: start: 20120719, end: 20120722
  3. OMEPRAZOLE [Suspect]
     Indication: PROPHYLAXIS
     Route: 048
     Dates: start: 20110603, end: 20120722
  4. SEROQUEL [Interacting]
     Indication: NOCTURNAL AGITATION
     Route: 048
     Dates: start: 20120719, end: 20120722
  5. TORADOL [Interacting]
     Indication: PAIN RELIEF
     Dosage: form- solucion injectable
     Route: 042
     Dates: start: 20120719
  6. METAMIZOLE [Suspect]
     Indication: PAIN RELIEF
     Route: 048
     Dates: start: 20120711, end: 20120722

REACTIONS (3)
  - Status epilepticus [Not Recovered/Not Resolved]
  - Drug interaction [Unknown]
  - Hypomagnesaemia [None]
